FAERS Safety Report 7507299-3 (Version None)
Quarter: 2011Q2

REPORT INFORMATION
  Report Type: 
  Country: None (occurrence: None)
  Receive Date: 20110526
  Receipt Date: 20110518
  Transmission Date: 20111010
  Serious: Yes (Disabling, Other)
  Sender: FDA-Public Use
  Company Number: US-CEPHALON-2011002448

PATIENT
  Age: 26 Year
  Sex: Male
  Weight: 114 kg

DRUGS (6)
  1. MODAFINIL [Suspect]
     Route: 048
     Dates: start: 20110215
  2. LAMICTAL [Concomitant]
  3. COGENTIN [Concomitant]
  4. GEODON [Concomitant]
     Indication: SCHIZOPHRENIA
     Dates: start: 20101101
  5. NEURONTIN [Concomitant]
  6. ZOLOFT [Concomitant]

REACTIONS (6)
  - INTENTIONAL DRUG MISUSE [None]
  - INSOMNIA [None]
  - HOMICIDAL IDEATION [None]
  - PARANOIA [None]
  - SCHIZOPHRENIA [None]
  - IRRITABILITY [None]
